FAERS Safety Report 16868430 (Version 1)
Quarter: 2019Q4

REPORT INFORMATION
  Report Type: Spontaneous
  Country: US (occurrence: US)
  Receive Date: 20190930
  Receipt Date: 20190930
  Transmission Date: 20200122
  Serious: Yes (Hospitalization)
  Sender: FDA-Public Use
  Company Number: None

PATIENT
  Age: 45 Year
  Sex: Male
  Weight: 96.12 kg

DRUGS (5)
  1. PIPERACILLIN/TAZOBACTAM 3.375 [Concomitant]
     Active Substance: PIPERACILLIN SODIUM\TAZOBACTAM SODIUM
     Dates: end: 20190831
  2. PRAZOSIN 5 MG [Concomitant]
  3. VANCOMYCIN 1.5 G [Concomitant]
     Dates: end: 20190826
  4. OLANZAPINE. [Suspect]
     Active Substance: OLANZAPINE
     Indication: PARANOIA
     Route: 048
     Dates: start: 20190815, end: 20190904
  5. LAMOTRIGINE 100 MG [Concomitant]
     Active Substance: LAMOTRIGINE
     Dates: end: 20190904

REACTIONS (2)
  - Hepatic enzyme increased [None]
  - Drug reaction with eosinophilia and systemic symptoms [None]

NARRATIVE: CASE EVENT DATE: 20190827
